FAERS Safety Report 5122732-2 (Version None)
Quarter: 2006Q4

REPORT INFORMATION
  Report Type: 
  Country: None (occurrence: None)
  Receive Date: 20061005
  Receipt Date: 20061005
  Transmission Date: 20070319
  Serious: Yes (Hospitalization)
  Sender: FDA-Public Use
  Company Number: None

PATIENT
  Age: 59 Year
  Sex: Male
  Weight: 56.246 kg

DRUGS (12)
  1. CISPLATIN [Suspect]
     Indication: OESOPHAGEAL CARCINOMA
     Dosage: 128 MG X1 IV
     Route: 042
     Dates: start: 20060926, end: 20060926
  2. FLUOROURACIL [Suspect]
     Dosage: 1700 MG DAILY X 5 DAYS IV
     Route: 042
     Dates: start: 20060925, end: 20060930
  3. PROMETHAZINE [Concomitant]
  4. ASPIRIN [Concomitant]
  5. OXYCODONE HCL [Concomitant]
  6. PANTOPRAZOLE SODIUM [Concomitant]
  7. DIPHENHYDRAMINE HCL [Concomitant]
  8. DOCUSATE NA [Concomitant]
  9. METOFLOPRAMIDE [Concomitant]
  10. TEMAZEPAM [Concomitant]
  11. ISOSOURCE [Concomitant]
  12. PROMETHAZINE [Concomitant]

REACTIONS (15)
  - ANXIETY [None]
  - CHEST PAIN [None]
  - DEHYDRATION [None]
  - DIARRHOEA [None]
  - DYSPNOEA [None]
  - HEART RATE INCREASED [None]
  - LETHARGY [None]
  - NAUSEA [None]
  - PALLOR [None]
  - PALPITATIONS [None]
  - PHONOPHOBIA [None]
  - PHOTOPHOBIA [None]
  - RETCHING [None]
  - TINNITUS [None]
  - VOMITING [None]
